FAERS Safety Report 19140650 (Version 1)
Quarter: 2021Q2

REPORT INFORMATION
  Report Type: Spontaneous
  Country: NO (occurrence: NO)
  Receive Date: 20210415
  Receipt Date: 20210415
  Transmission Date: 20210717
  Serious: Yes (Hospitalization)
  Sender: FDA-Public Use
  Company Number: NO-TEVA-2021-NO-1900851

PATIENT
  Age: 67 Year
  Sex: Male

DRUGS (4)
  1. ATACAND [Concomitant]
     Active Substance: CANDESARTAN CILEXETIL
     Indication: HYPERTENSION
     Dosage: 8 MG
     Route: 048
  2. CAPECITABINE. [Concomitant]
     Active Substance: CAPECITABINE
     Indication: CHEMOTHERAPY
     Dosage: 2150 MG
     Route: 048
     Dates: start: 20210224, end: 20210228
  3. OXALIPLATIN. [Suspect]
     Active Substance: OXALIPLATIN
     Indication: CHEMOTHERAPY
     Dosage: 280 MG
     Route: 042
     Dates: start: 20210224, end: 20210224
  4. ORFIRIL RETARD [Concomitant]
     Active Substance: VALPROIC ACID
     Indication: MIGRAINE
     Dosage: 600 MG
     Route: 048
     Dates: start: 2018

REACTIONS (1)
  - Pancreatitis acute [Recovered/Resolved with Sequelae]

NARRATIVE: CASE EVENT DATE: 20210228
